FAERS Safety Report 20485301 (Version 1)
Quarter: 2022Q1

REPORT INFORMATION
  Report Type: Report from Study
  Country: TR (occurrence: TR)
  Receive Date: 20220217
  Receipt Date: 20220217
  Transmission Date: 20220424
  Serious: Yes (Other)
  Sender: FDA-Public Use
  Company Number: TR-BAYER-2022A020854

PATIENT
  Age: 26 Year
  Sex: Female

DRUGS (1)
  1. NAPROXEN SODIUM [Suspect]
     Active Substance: NAPROXEN SODIUM
     Dosage: 550 MG (?14)

REACTIONS (4)
  - Toxicity to various agents [None]
  - Maternal exposure during pregnancy [None]
  - Premature delivery [None]
  - Suicide attempt [None]
